FAERS Safety Report 6521093-1 (Version None)
Quarter: 2009Q4

REPORT INFORMATION
  Report Type: 
  Country: None (occurrence: None)
  Receive Date: 20091222
  Receipt Date: 20091212
  Transmission Date: 20100525
  Serious: Yes (Hospitalization)
  Sender: FDA-Public Use
  Company Number: 2009AP005026

PATIENT
  Age: 55 Year
  Sex: Female

DRUGS (3)
  1. CITALOPRAM HYDROBROMIDE [Suspect]
     Indication: DEPRESSION
  2. BUPROPION HCL [Suspect]
     Indication: DEPRESSION
  3. METHYLENE BLUE [Suspect]
     Dosage: 75 MG/KG

REACTIONS (7)
  - APHASIA [None]
  - BLINDNESS CORTICAL [None]
  - CHOREA [None]
  - ENCEPHALOPATHY [None]
  - HYPERTENSION [None]
  - SEROTONIN SYNDROME [None]
  - VISION BLURRED [None]
